FAERS Safety Report 7982288-3 (Version None)
Quarter: 2011Q4

REPORT INFORMATION
  Report Type: 
  Country: None (occurrence: None)
  Receive Date: 20111214
  Receipt Date: 20111214
  Transmission Date: 20120403
  Serious: Yes (Hospitalization)
  Sender: FDA-Public Use
  Company Number: None

PATIENT
  Age: 58 Year
  Sex: Female
  Weight: 90.7194 kg

DRUGS (1)
  1. LENALIDOMIDE [Suspect]
     Indication: B-CELL LYMPHOMA
     Dosage: 25MG QD, D 1-21 Q 28D PO
     Route: 048
     Dates: start: 20111130

REACTIONS (3)
  - PYREXIA [None]
  - VOMITING [None]
  - DIARRHOEA [None]
